FAERS Safety Report 18860707 (Version 48)
Quarter: 2025Q1

REPORT INFORMATION
  Report Type: Report from Study
  Country: CA (occurrence: CA)
  Receive Date: 20210208
  Receipt Date: 20250311
  Transmission Date: 20250408
  Serious: Yes (Hospitalization, Other)
  Sender: TAKEDA
  Company Number: CA-TAKEDA-2021TUS004751

PATIENT
  Sex: Male
  Weight: 72 kg

DRUGS (50)
  1. TEDUGLUTIDE [Suspect]
     Active Substance: TEDUGLUTIDE
     Indication: Short-bowel syndrome
     Dosage: 3.6 MILLIGRAM, QD
     Dates: start: 20210118
  2. TEDUGLUTIDE [Suspect]
     Active Substance: TEDUGLUTIDE
     Dosage: 0.05 MILLIGRAM, QD
  3. TEDUGLUTIDE [Suspect]
     Active Substance: TEDUGLUTIDE
     Dosage: 3.6 MILLIGRAM, QD
     Dates: end: 202205
  4. TEDUGLUTIDE [Suspect]
     Active Substance: TEDUGLUTIDE
     Dosage: 3.6 MILLIGRAM, 1/WEEK
  5. TEDUGLUTIDE [Suspect]
     Active Substance: TEDUGLUTIDE
     Dosage: 3.6 MILLIGRAM, Q2WEEKS
  6. TEDUGLUTIDE [Suspect]
     Active Substance: TEDUGLUTIDE
     Dosage: 3.6 MILLIGRAM, QD
  7. TEDUGLUTIDE [Suspect]
     Active Substance: TEDUGLUTIDE
     Dosage: 3.6 MILLIGRAM, QD
  8. TEDUGLUTIDE [Suspect]
     Active Substance: TEDUGLUTIDE
     Dosage: UNK UNK, 1/WEEK
  9. TEDUGLUTIDE [Suspect]
     Active Substance: TEDUGLUTIDE
     Dosage: 3.6 MILLIGRAM, QD
  10. STELARA [Suspect]
     Active Substance: USTEKINUMAB
     Indication: Crohn^s disease
     Dosage: 90 MILLIGRAM, MONTHLY
  11. MIRTAZAPINE [Suspect]
     Active Substance: MIRTAZAPINE
     Indication: Product used for unknown indication
  12. TPN [Concomitant]
     Active Substance: AMINO ACIDS\DEXTROSE\ELECTROLYTES NOS\SOYBEAN OIL
     Dosage: 1800 MILLILITER, 2/WEEK
     Dates: start: 202201
  13. TPN [Concomitant]
     Active Substance: AMINO ACIDS\DEXTROSE\ELECTROLYTES NOS\SOYBEAN OIL
     Dosage: 1560 MILLILITER, 3/WEEK
     Dates: end: 20220908
  14. ESOMEPRAZOLE [Concomitant]
     Active Substance: ESOMEPRAZOLE
     Dosage: 40 MILLIGRAM, BID
     Dates: start: 20201204
  15. ZOPICLONE [Concomitant]
     Active Substance: ZOPICLONE
     Dosage: 7.5 MILLIGRAM, BID
     Dates: start: 20201204
  16. ZOPICLONE [Concomitant]
     Active Substance: ZOPICLONE
     Dosage: 7.5 MILLIGRAM, Q4HR
  17. ZOPICLONE [Concomitant]
     Active Substance: ZOPICLONE
     Dosage: 7.5 MILLIGRAM, BID
  18. OXYCODONE [Concomitant]
     Active Substance: OXYCODONE
     Indication: Procedural pain
     Dosage: UNK UNK, Q3HR
     Dates: start: 20201204
  19. XARELTO [Concomitant]
     Active Substance: RIVAROXABAN
     Dosage: 20 MILLIGRAM, QD
     Dates: start: 20201204
  20. FLUCONAZOLE [Concomitant]
     Active Substance: FLUCONAZOLE
     Indication: Candida infection
     Dosage: 50 MILLIGRAM, QD
     Dates: start: 20201204
  21. FLUCONAZOLE [Concomitant]
     Active Substance: FLUCONAZOLE
     Dosage: 200 MILLIGRAM, QD
  22. FLUCONAZOLE [Concomitant]
     Active Substance: FLUCONAZOLE
     Dosage: UNK UNK, QD
  23. NYSTATIN [Concomitant]
     Active Substance: NYSTATIN
     Dosage: 1000 INTERNATIONAL UNIT, BID
     Dates: start: 20201204
  24. FLOVENT [Concomitant]
     Active Substance: FLUTICASONE PROPIONATE
     Indication: Ostomy bag placement
  25. CEPHALEXIN [Concomitant]
     Active Substance: CEPHALEXIN
     Dosage: 500 MILLIGRAM, QID
     Dates: start: 20201204
  26. TEMAZEPAM [Concomitant]
     Active Substance: TEMAZEPAM
     Dosage: 30 MILLIGRAM, QD
  27. TEMAZEPAM [Concomitant]
     Active Substance: TEMAZEPAM
     Dosage: 4 DOSAGE FORM, QID
  28. TEMAZEPAM [Concomitant]
     Active Substance: TEMAZEPAM
     Dosage: UNK UNK, QD
  29. CITALOPRAM [Concomitant]
     Active Substance: CITALOPRAM
     Dosage: 2 DOSAGE FORM, BID
  30. CITALOPRAM [Concomitant]
     Active Substance: CITALOPRAM
     Dosage: 20 MILLIGRAM, BID
  31. CITALOPRAM [Concomitant]
     Active Substance: CITALOPRAM
     Dosage: UNK, QD
  32. DEXTROAMPHETAMINE [Concomitant]
     Active Substance: DEXTROAMPHETAMINE
  33. GRAVOL [Concomitant]
     Active Substance: DIMENHYDRINATE
     Dosage: 50 MILLIGRAM, Q6HR
     Dates: start: 20201204
  34. GRAVOL [Concomitant]
     Active Substance: DIMENHYDRINATE
     Dosage: 150 MILLIGRAM, Q3HR
  35. GRAVOL [Concomitant]
     Active Substance: DIMENHYDRINATE
     Dosage: 3 DOSAGE FORM, Q6HR
  36. DEXTROAMPHETAMINE HYDROCHLORIDE [Concomitant]
     Active Substance: DEXTROAMPHETAMINE HYDROCHLORIDE
  37. DEXTROAMPHETAMINE HYDROCHLORIDE [Concomitant]
     Active Substance: DEXTROAMPHETAMINE HYDROCHLORIDE
  38. DEXTROAMPHETAMINE HYDROCHLORIDE [Concomitant]
     Active Substance: DEXTROAMPHETAMINE HYDROCHLORIDE
  39. FAT EMULSION NOS [Concomitant]
     Active Substance: EGG PHOSPHOLIPIDS\SAFFLOWER OIL\SOYBEAN OIL
     Dosage: 250 MILLILITER, 3/WEEK
     Dates: start: 20201204
  40. FAT EMULSION NOS [Concomitant]
     Active Substance: EGG PHOSPHOLIPIDS\SAFFLOWER OIL\SOYBEAN OIL
     Dosage: UNK UNK, 4/WEEK
  41. FAT EMULSION NOS [Concomitant]
     Active Substance: EGG PHOSPHOLIPIDS\SAFFLOWER OIL\SOYBEAN OIL
  42. SODIUM CHLORIDE [Concomitant]
     Active Substance: SODIUM CHLORIDE
     Indication: Dehydration
  43. SODIUM CHLORIDE [Concomitant]
     Active Substance: SODIUM CHLORIDE
  44. ESCITALOPRAM [Concomitant]
     Active Substance: ESCITALOPRAM OXALATE
     Dosage: 20 MILLIGRAM, QD
     Dates: start: 20201204
  45. ESCITALOPRAM [Concomitant]
     Active Substance: ESCITALOPRAM OXALATE
     Dosage: 20 MILLIGRAM, QD
  46. ESCITALOPRAM [Concomitant]
     Active Substance: ESCITALOPRAM OXALATE
     Dosage: 40 MILLIGRAM, QD
  47. DEXTROSE [Concomitant]
     Active Substance: DEXTROSE MONOHYDRATE
     Dosage: UNK UNK, Q2WEEKS
     Dates: start: 201905
  48. DAYVIGO [Concomitant]
     Active Substance: LEMBOREXANT
     Indication: Sleep disorder
  49. OLIVE OIL\SOYBEAN OIL [Concomitant]
     Active Substance: OLIVE OIL\SOYBEAN OIL
  50. HUMIRA [Concomitant]
     Active Substance: ADALIMUMAB
     Indication: Crohn^s disease

REACTIONS (64)
  - Staphylococcal infection [Not Recovered/Not Resolved]
  - Osteomyelitis [Not Recovered/Not Resolved]
  - Vascular device infection [Unknown]
  - Malaise [Recovered/Resolved]
  - Faeces hard [Not Recovered/Not Resolved]
  - Oesophageal disorder [Recovering/Resolving]
  - Faecal volume decreased [Not Recovered/Not Resolved]
  - Back pain [Not Recovered/Not Resolved]
  - Urine output decreased [Not Recovered/Not Resolved]
  - Intervertebral disc compression [Not Recovered/Not Resolved]
  - Osteitis [Not Recovered/Not Resolved]
  - Illness [Unknown]
  - Pyrexia [Not Recovered/Not Resolved]
  - Crohn^s disease [Unknown]
  - C-reactive protein increased [Not Recovered/Not Resolved]
  - Insomnia [Not Recovered/Not Resolved]
  - Nausea [Recovering/Resolving]
  - Small intestinal obstruction [Not Recovered/Not Resolved]
  - Intestinal obstruction [Recovered/Resolved]
  - Device related sepsis [Recovered/Resolved]
  - Body temperature increased [Unknown]
  - Pollakiuria [Unknown]
  - Palpitations [Unknown]
  - Tremor [Unknown]
  - Fatigue [Not Recovered/Not Resolved]
  - Oral herpes [Not Recovered/Not Resolved]
  - Confusional state [Not Recovered/Not Resolved]
  - Constipation [Unknown]
  - Paranoia [Not Recovered/Not Resolved]
  - Weight decreased [Not Recovered/Not Resolved]
  - Stoma site erythema [Recovering/Resolving]
  - Muscle spasms [Recovered/Resolved]
  - Dehydration [Unknown]
  - Arthralgia [Unknown]
  - Blood pressure increased [Unknown]
  - Infusion related reaction [Unknown]
  - Diarrhoea [Recovering/Resolving]
  - General physical health deterioration [Unknown]
  - Abdominal discomfort [Unknown]
  - Choking sensation [Not Recovered/Not Resolved]
  - Inflammation [Recovering/Resolving]
  - Back injury [Recovering/Resolving]
  - Haemoglobin decreased [Not Recovered/Not Resolved]
  - White blood cell count decreased [Not Recovered/Not Resolved]
  - Myalgia [Not Recovered/Not Resolved]
  - Depression [Recovering/Resolving]
  - Obstruction [Unknown]
  - Pain [Unknown]
  - Gastroenteritis viral [Recovered/Resolved]
  - Gastrointestinal stoma output decreased [Recovered/Resolved]
  - Death of relative [Unknown]
  - Depressed mood [Unknown]
  - Product dose omission issue [Not Recovered/Not Resolved]
  - Product prescribing issue [Unknown]
  - Headache [Unknown]
  - Influenza like illness [Unknown]
  - Influenza [Unknown]
  - Injection site pain [Unknown]
  - Nasopharyngitis [Unknown]
  - Vomiting [Not Recovered/Not Resolved]
  - Decreased appetite [Not Recovered/Not Resolved]
  - Abdominal distension [Recovering/Resolving]
  - Abdominal pain [Unknown]
  - Abnormal faeces [Recovering/Resolving]

NARRATIVE: CASE EVENT DATE: 20210101
